FAERS Safety Report 4643360-9 (Version None)
Quarter: 2005Q2

REPORT INFORMATION
  Report Type: 
  Country: None (occurrence: None)
  Receive Date: 20050422
  Receipt Date: 20050405
  Transmission Date: 20051028
  Serious: Yes (Hospitalization)
  Sender: FDA-Public Use
  Company Number: 2004UW23246

PATIENT
  Age: 73 Year
  Sex: Female

DRUGS (4)
  1. CRESTOR [Suspect]
     Dosage: 10 MG PO
     Route: 048
  2. ACE INHIBITOR [Concomitant]
  3. DIURETIC [Concomitant]
  4. SYNTHROID [Concomitant]

REACTIONS (2)
  - MYOSITIS [None]
  - NAUSEA [None]
